FAERS Safety Report 8623879 (Version 2)
Quarter: 2012Q4

REPORT INFORMATION
  Report Type: 
  Country: BR (occurrence: BR)
  Receive Date: 20120620
  Receipt Date: 20121010
  Transmission Date: 20130627
  Serious: Yes (Other)
  Sender: FDA-Public Use
  Company Number: BR-PFIZER INC-2012143620

PATIENT
  Age: 80 Year
  Sex: Male

DRUGS (2)
  1. NORVASC [Suspect]
     Indication: HYPERTENSION
     Dosage: 5 mg, 2x/day
     Route: 048
  2. OLMETEC HCT [Suspect]
     Indication: HYPERTENSION
     Dosage: 40 mg/ 12.5 mg, 1x/day
     Route: 048

REACTIONS (1)
  - Hypertensive crisis [Unknown]
